FAERS Safety Report 13032209 (Version 1)
Quarter: 2016Q4

REPORT INFORMATION
  Report Type: Report from Study
  Country: JP (occurrence: JP)
  Receive Date: 20161215
  Receipt Date: 20161215
  Transmission Date: 20170207
  Serious: Yes (Hospitalization)
  Sender: FDA-Public Use
  Company Number: JP-DSJP-DSJ-2016-139790AA

PATIENT

DRUGS (10)
  1. MAINTATE [Concomitant]
     Active Substance: BISOPROLOL FUMARATE
     Dosage: 5MG/DAY
     Route: 048
     Dates: end: 20160913
  2. MAGNESIUM OXIDE. [Concomitant]
     Active Substance: MAGNESIUM OXIDE
     Dosage: 750MG/DAY
     Route: 048
     Dates: start: 20160903, end: 20160928
  3. ALDACTONE A [Concomitant]
     Active Substance: SPIRONOLACTONE
     Dosage: 25MG/DAY
     Route: 048
     Dates: start: 20160910, end: 20160920
  4. HANP FOR INJECTION 1000 [Concomitant]
     Dosage: 2MG/DAY
     Route: 042
     Dates: start: 20160913, end: 20160927
  5. TAKELDA [Concomitant]
     Active Substance: ASPIRIN\LANSOPRAZOLE
     Dosage: 100MG/DAY
     Route: 048
     Dates: end: 20160909
  6. THYRADIN S [Concomitant]
     Active Substance: LEVOTHYROXINE SODIUM
     Dosage: 25MG/DAY
     Route: 048
  7. TAKEPRON [Concomitant]
     Active Substance: LANSOPRAZOLE
     Dosage: 15MG/DAY
     Route: 048
     Dates: start: 20160910
  8. SAMSCA [Concomitant]
     Active Substance: TOLVAPTAN
     Dosage: 7.5MG/DAY
     Route: 048
     Dates: start: 20160911
  9. LUPRAC [Concomitant]
     Active Substance: TORSEMIDE
     Dosage: 8MG/DAY
     Route: 048
     Dates: start: 20160910
  10. EDOXABAN [Suspect]
     Active Substance: EDOXABAN TOSYLATE
     Indication: ATRIAL FIBRILLATION
     Dosage: 30 MG, QD
     Route: 048
     Dates: start: 20160804, end: 20160912

REACTIONS (4)
  - Pneumonia aspiration [Recovering/Resolving]
  - Mediastinitis [Recovered/Resolved]
  - Female genital tract fistula [Not Recovered/Not Resolved]
  - Rectal ulcer haemorrhage [Recovered/Resolved]

NARRATIVE: CASE EVENT DATE: 20160903
